FAERS Safety Report 9510200 (Version 2)
Quarter: 2013Q3

REPORT INFORMATION
  Report Type: Spontaneous
  Country: US (occurrence: US)
  Receive Date: 20130909
  Receipt Date: 20130909
  Transmission Date: 20140515
  Serious: No
  Sender: FDA-Public Use
  Company Number: US-BRISTOL-MYERS SQUIBB COMPANY-18708339

PATIENT
  Age: 18 Year
  Sex: Female
  Weight: 70.29 kg

DRUGS (4)
  1. ABILIFY [Suspect]
     Indication: BIPOLAR DISORDER
     Dosage: DOSE INCREASED: 5,15,30MG
     Dates: start: 2011
  2. SEROQUEL [Concomitant]
  3. OMEPRAZOLE [Concomitant]
  4. OMEGA-3 [Concomitant]

REACTIONS (2)
  - Vision blurred [Unknown]
  - Drug ineffective [Unknown]
